FAERS Safety Report 17918907 (Version 2)
Quarter: 2020Q4

REPORT INFORMATION
  Report Type: Spontaneous
  Country: US (occurrence: US)
  Receive Date: 20200619
  Receipt Date: 20201216
  Transmission Date: 20210113
  Serious: No
  Sender: FDA-Public Use
  Company Number: US-PFIZER INC-2020238019

PATIENT
  Age: 53 Year
  Sex: Female

DRUGS (3)
  1. XELJANZ [Concomitant]
     Active Substance: TOFACITINIB CITRATE
     Dosage: UNK
  2. XELJANZ XR [Suspect]
     Active Substance: TOFACITINIB CITRATE
     Indication: RHEUMATOID FACTOR
     Dosage: 11 MG, DAILY
     Route: 048
     Dates: start: 20191204
  3. XELJANZ XR [Suspect]
     Active Substance: TOFACITINIB CITRATE
     Indication: RHEUMATOID ARTHRITIS
     Dosage: 11 MG, DAILY
     Route: 048
     Dates: start: 201912

REACTIONS (2)
  - Blood pressure increased [Unknown]
  - Blood cholesterol increased [Recovering/Resolving]

NARRATIVE: CASE EVENT DATE: 20200616
